FAERS Safety Report 7524716-3 (Version None)
Quarter: 2011Q2

REPORT INFORMATION
  Report Type: 
  Country: None (occurrence: None)
  Receive Date: 20110606
  Receipt Date: 20110527
  Transmission Date: 20111010
  Serious: Yes (Hospitalization, Other)
  Sender: FDA-Public Use
  Company Number: US-GENZYME-THYM-1002489

PATIENT
  Age: 16 Year
  Sex: Male

DRUGS (1)
  1. THYMOGLOBULIN [Suspect]
     Indication: KIDNEY TRANSPLANT REJECTION
     Dosage: 100 MG, UNK
     Route: 042

REACTIONS (3)
  - DRUG SPECIFIC ANTIBODY PRESENT [None]
  - SERUM SICKNESS [None]
  - CARDIAC ARREST [None]
